FAERS Safety Report 12343609 (Version 5)
Quarter: 2017Q2

REPORT INFORMATION
  Report Type: Report from Study
  Country: US (occurrence: US)
  Receive Date: 20160506
  Receipt Date: 20170403
  Transmission Date: 20170830
  Serious: No
  Sender: FDA-Public Use
  Company Number: PHEH2016US010810

PATIENT
  Age: 36 Year
  Sex: Female
  Weight: 62.59 kg

DRUGS (2)
  1. GILENYA [Suspect]
     Active Substance: FINGOLIMOD HYDROCHLORIDE
     Indication: MULTIPLE SCLEROSIS
     Dosage: 0.5 MG, QD
     Route: 048
     Dates: start: 20111007
  2. GILENYA [Suspect]
     Active Substance: FINGOLIMOD HYDROCHLORIDE
     Dosage: 0.5 MG, QD
     Route: 048
     Dates: start: 20170310

REACTIONS (8)
  - Visual impairment [Unknown]
  - Malaise [Unknown]
  - Hypokinesia [Unknown]
  - Urinary tract infection [Unknown]
  - Headache [Unknown]
  - Multiple sclerosis relapse [Unknown]
  - JC virus test positive [Unknown]
  - Frustration tolerance decreased [Unknown]

NARRATIVE: CASE EVENT DATE: 20170323
